FAERS Safety Report 10016094 (Version 3)
Quarter: 2014Q2

REPORT INFORMATION
  Report Type: Spontaneous
  Country: TR (occurrence: TR)
  Receive Date: 20140317
  Receipt Date: 20140620
  Transmission Date: 20141212
  Serious: Yes (Hospitalization)
  Sender: FDA-Public Use
  Company Number: TR-VERTEX PHARMACEUTICALS INC-2014-001262

PATIENT
  Age: 66 Year
  Sex: Female

DRUGS (8)
  1. INCIVO [Suspect]
     Indication: CHRONIC HEPATITIS C
     Dosage: 2250 MG, QD
     Route: 048
     Dates: start: 20130201
  2. INCIVO [Suspect]
     Dosage: UNK
     Route: 048
  3. PEGINTERFERON ALFA-2A [Suspect]
     Indication: CHRONIC HEPATITIS C
     Dosage: 180 ?G, QW
     Route: 058
     Dates: start: 20130201
  4. PEGINTERFERON ALFA-2A [Suspect]
     Dosage: UNK
     Route: 058
  5. RIBAVIRIN [Suspect]
     Indication: CHRONIC HEPATITIS C
     Dosage: UNK
     Route: 048
  6. RIBAVIRIN [Suspect]
     Dosage: 1200 MG, QD
     Route: 048
     Dates: start: 20130201
  7. PROTINUM [Concomitant]
     Indication: GASTROINTESTINAL DISORDER THERAPY
     Dosage: (40 MG) 2 X 1
     Route: 048
     Dates: start: 20130412
  8. EKLIPS PLUS [Concomitant]
     Indication: HYPERTENSION
     Route: 048

REACTIONS (2)
  - Nausea [Recovered/Resolved]
  - Off label use [Unknown]
